FAERS Safety Report 9716944 (Version 1)
Quarter: 2013Q4

REPORT INFORMATION
  Report Type: Spontaneous
  Country: US (occurrence: US)
  Receive Date: 20131127
  Receipt Date: 20131127
  Transmission Date: 20140711
  Serious: No
  Sender: FDA-Public Use
  Company Number: US-GILEAD-2009-0020029

PATIENT
  Sex: Female
  Weight: 69.85 kg

DRUGS (11)
  1. LETAIRIS [Suspect]
     Indication: PULMONARY ARTERIAL HYPERTENSION
     Route: 048
     Dates: start: 20081222
  2. REVATIO [Concomitant]
  3. WARFARIN [Concomitant]
  4. SPIRONOLACTONE [Concomitant]
  5. TIAZAC [Concomitant]
  6. DOXEPIN [Concomitant]
  7. EFFEXOR [Concomitant]
  8. DIAZEPAM [Concomitant]
  9. CALCIUM [Concomitant]
  10. MAGNESIUM [Concomitant]
  11. MULTIVITAMINS [Concomitant]

REACTIONS (4)
  - Paraesthesia oral [Unknown]
  - Paraesthesia [Unknown]
  - Dizziness [Unknown]
  - Asthenia [Unknown]
